FAERS Safety Report 6402639-0 (Version None)
Quarter: 2009Q4

REPORT INFORMATION
  Report Type: 
  Country: None (occurrence: None)
  Receive Date: 20091009
  Receipt Date: 20090930
  Transmission Date: 20100525
  Serious: No
  Sender: FDA-Public Use
  Company Number: ADR34892009

PATIENT
  Age: 60 Year
  Sex: Male

DRUGS (2)
  1. CIPROFLOXACIN [Suspect]
     Indication: CYSTITIS
     Dosage: 1 G ORAL
     Route: 048
     Dates: start: 20070108, end: 20070122
  2. CIPROFLOXACIN [Suspect]
     Indication: URINARY TRACT INFECTION
     Dosage: 1 G ORAL
     Route: 048
     Dates: start: 20070108, end: 20070122

REACTIONS (3)
  - GENITAL PAIN [None]
  - RASH MACULAR [None]
  - TESTICULAR PAIN [None]
